FAERS Safety Report 6489231-7 (Version None)
Quarter: 2009Q4

REPORT INFORMATION
  Report Type: 
  Country: None (occurrence: None)
  Receive Date: 20091210
  Receipt Date: 20091001
  Transmission Date: 20100525
  Serious: No
  Sender: FDA-Public Use
  Company Number: US-AMGEN-KDL367172

PATIENT
  Sex: Female

DRUGS (4)
  1. ENBREL [Suspect]
     Indication: PSORIATIC ARTHROPATHY
     Route: 058
     Dates: start: 20060824, end: 20080901
  2. ENBREL [Suspect]
     Indication: PSORIASIS
  3. ASPIRIN [Concomitant]
  4. VITAMIN TAB [Concomitant]

REACTIONS (3)
  - PRENATAL SCREENING TEST ABNORMAL [None]
  - PSORIASIS [None]
  - PSORIATIC ARTHROPATHY [None]
